FAERS Safety Report 7720365-2 (Version None)
Quarter: 2011Q3

REPORT INFORMATION
  Report Type: 
  Country: None (occurrence: None)
  Receive Date: 20110830
  Receipt Date: 20110830
  Transmission Date: 20111222
  Serious: Yes (Other)
  Sender: FDA-Public Use
  Company Number: None

PATIENT
  Sex: Female
  Weight: 78.0187 kg

DRUGS (1)
  1. ALVESCO [Suspect]
     Indication: ASTHMA
     Dosage: 2 PUFFS TWICE A DAY INHALATION - ORAL
     Route: 055
     Dates: start: 20110704, end: 20110804

REACTIONS (4)
  - DEVICE MALFUNCTION [None]
  - COUGH [None]
  - CHEST DISCOMFORT [None]
  - FATIGUE [None]
